FAERS Safety Report 8926206 (Version 3)
Quarter: 2012Q4

REPORT INFORMATION
  Report Type: 
  Country: ES (occurrence: ES)
  Receive Date: 20121126
  Receipt Date: 20121226
  Transmission Date: 20130627
  Serious: Yes (Other)
  Sender: FDA-Public Use
  Company Number: ES-AMGEN-ESPSP2012075658

PATIENT
  Age: 80 Year
  Sex: Female

DRUGS (17)
  1. ENBREL [Suspect]
     Indication: RHEUMATOID ARTHRITIS
     Dosage: 50 mg, weekly
     Dates: start: 20110808, end: 20120719
  2. DEFLAZACORT [Concomitant]
     Dosage: UNK
     Dates: start: 20120122
  3. HYDROXYCHLOROQUINE [Concomitant]
     Dosage: UNK
     Dates: start: 20120122, end: 20120422
  4. METHOTREXATE [Concomitant]
     Dosage: UNK
     Dates: start: 20100422, end: 20120719
  5. PONTALSIC [Concomitant]
     Dosage: UNK
     Dates: start: 20100422
  6. FOLIC ACID [Concomitant]
     Dosage: UNK
     Dates: start: 20100422, end: 20120719
  7. CALCIUM WITH VITAMIN D             /00944201/ [Concomitant]
     Dosage: UNK
  8. HIDROSALURETIL [Concomitant]
     Dosage: UNK
     Dates: start: 20091118
  9. LANSOPRAZOLE [Concomitant]
     Dosage: UNK
     Dates: start: 20081209
  10. SUCRALFATE [Concomitant]
     Dosage: UNK
     Dates: start: 20081209
  11. ZOLEDRONIC ACID [Concomitant]
     Dosage: UNK
     Dates: start: 20100528, end: 20100528
  12. ZOLEDRONIC ACID [Concomitant]
     Dosage: UNK
     Dates: start: 20110824, end: 20110824
  13. LORAZEPAM [Concomitant]
     Dosage: UNK
     Dates: start: 20091118
  14. TOLTERODINE [Concomitant]
     Dosage: UNK
     Dates: start: 20081209
  15. GLUCOSAMINE [Concomitant]
     Dosage: UNK
     Dates: start: 20100422
  16. HIDROSMIN [Concomitant]
     Dosage: UNK
  17. HIDROSMIN [Concomitant]

REACTIONS (1)
  - Diffuse large B-cell lymphoma [Not Recovered/Not Resolved]
